FAERS Safety Report 4550202-9 (Version None)
Quarter: 2005Q1

REPORT INFORMATION
  Report Type: 
  Country: None (occurrence: None)
  Receive Date: 20050112
  Receipt Date: 20050103
  Transmission Date: 20050727
  Serious: Yes (Hospitalization, Disabling, Other)
  Sender: FDA-Public Use
  Company Number: US-GLAXOSMITHKLINE-A0539545A

PATIENT
  Age: 53 Year
  Sex: Female
  Weight: 72.7 kg

DRUGS (8)
  1. GAVISCON [Suspect]
     Indication: GASTROOESOPHAGEAL REFLUX DISEASE
     Route: 048
     Dates: start: 19940101
  2. LANTUS [Concomitant]
     Indication: DIABETES MELLITUS
     Route: 058
  3. HUMULIN N [Concomitant]
     Indication: DIABETES MELLITUS
     Route: 058
  4. DILANTIN [Concomitant]
     Indication: EPILEPSY
     Route: 048
  5. NEURONTIN [Concomitant]
     Indication: EPILEPSY
     Route: 048
  6. DIOVAN [Concomitant]
     Indication: HYPERTENSION
     Route: 048
  7. ZETIA [Concomitant]
     Indication: BLOOD CHOLESTEROL INCREASED
     Route: 048
  8. METOCLOPRAMIDE [Concomitant]
     Indication: GASTROOESOPHAGEAL REFLUX DISEASE
     Route: 048

REACTIONS (10)
  - ABASIA [None]
  - BACK PAIN [None]
  - BLOOD GLUCOSE FLUCTUATION [None]
  - BLOOD GLUCOSE INCREASED [None]
  - FALL [None]
  - INTERVERTEBRAL DISC PROTRUSION [None]
  - SPINAL FRACTURE [None]
  - THROMBOSIS [None]
  - WALKING AID USER [None]
  - WHEELCHAIR USER [None]
